FAERS Safety Report 19499718 (Version 2)
Quarter: 2022Q4

REPORT INFORMATION
  Report Type: Spontaneous
  Country: GB (occurrence: GB)
  Receive Date: 20210706
  Receipt Date: 20221018
  Transmission Date: 20230112
  Serious: Yes (Disabling)
  Sender: FDA-Public Use
  Company Number: None

PATIENT

DRUGS (3)
  1. IBUPROFEN [Suspect]
     Active Substance: IBUPROFEN
     Indication: Product used for unknown indication
     Dosage: UNK
     Route: 065
  2. MODERNA COVID-19 VACCINE [Suspect]
     Active Substance: ELASOMERAN
     Indication: Product used for unknown indication
     Dosage: UNK(DOSE 1)
     Route: 065
     Dates: start: 20210429
  3. MODERNA COVID-19 VACCINE [Suspect]
     Active Substance: ELASOMERAN
     Dosage: UNK(DOSE 2)
     Route: 065
     Dates: start: 20210702

REACTIONS (6)
  - Nausea [Recovering/Resolving]
  - Headache [Recovering/Resolving]
  - Influenza [Recovering/Resolving]
  - Axillary pain [Not Recovered/Not Resolved]
  - Pyrexia [Recovered/Resolved]
  - Chills [Recovered/Resolved]

NARRATIVE: CASE EVENT DATE: 20210702
